FAERS Safety Report 5588407-0 (Version None)
Quarter: 2008Q1

REPORT INFORMATION
  Report Type: 
  Country: None (occurrence: None)
  Receive Date: 20080111
  Receipt Date: 20071119
  Transmission Date: 20080703
  Serious: No
  Sender: FDA-Public Use
  Company Number: A0695167A

PATIENT
  Age: 50 Year
  Sex: Female

DRUGS (3)
  1. TYKERB [Suspect]
     Indication: BREAST CANCER
     Dosage: 1250MG PER DAY
     Route: 048
     Dates: start: 20070901
  2. XELODA [Suspect]
     Indication: BREAST CANCER
     Dates: start: 20070901
  3. ZOFRAN [Concomitant]

REACTIONS (5)
  - DIARRHOEA [None]
  - EATING DISORDER [None]
  - MALAISE [None]
  - NAUSEA [None]
  - VOMITING [None]
